FAERS Safety Report 7704883-9 (Version None)
Quarter: 2011Q3

REPORT INFORMATION
  Report Type: 
  Country: None (occurrence: None)
  Receive Date: 20110823
  Receipt Date: 20110818
  Transmission Date: 20111222
  Serious: Yes (Other)
  Sender: FDA-Public Use
  Company Number: US-PFIZER INC-2011132470

PATIENT
  Sex: Female

DRUGS (2)
  1. CHANTIX [Suspect]
     Indication: SMOKING CESSATION THERAPY
     Dosage: UNK
     Dates: start: 20061122, end: 20061201
  2. CHANTIX [Suspect]
     Dosage: UNK
     Dates: start: 20080102, end: 20080201

REACTIONS (10)
  - INSOMNIA [None]
  - AGGRESSION [None]
  - IRRITABILITY [None]
  - SUICIDAL IDEATION [None]
  - HOMICIDAL IDEATION [None]
  - MARITAL PROBLEM [None]
  - MENTAL DISORDER [None]
  - ANXIETY [None]
  - DEPRESSION [None]
  - MOOD SWINGS [None]
